FAERS Safety Report 4341127-2 (Version None)
Quarter: 2004Q2

REPORT INFORMATION
  Report Type: 
  Country: None (occurrence: None)
  Receive Date: 20040413
  Receipt Date: 20040331
  Transmission Date: 20050107
  Serious: Yes (Hospitalization)
  Sender: FDA-Public Use
  Company Number: 2004022796

PATIENT
  Age: 78 Year
  Sex: Male

DRUGS (1)
  1. ZOLOFT [Suspect]
     Indication: ILL-DEFINED DISORDER
     Dosage: 50 MG (DAILY), UNKNOWN
     Dates: end: 20040301

REACTIONS (1)
  - ANURIA [None]
